FAERS Safety Report 16261979 (Version 7)
Quarter: 2019Q4

REPORT INFORMATION
  Report Type: Report from Study
  Country: IE (occurrence: IE)
  Receive Date: 20190501
  Receipt Date: 20191211
  Transmission Date: 20200122
  Serious: Yes (Hospitalization, Other)
  Sender: FDA-Public Use
  Company Number: IE-SHIRE-IE201909677

PATIENT

DRUGS (4)
  1. HYQVIA [Suspect]
     Active Substance: HUMAN IMMUNOGLOBULIN G\HYALURONIDASE RECOMBINANT HUMAN
     Indication: PRODUCT USED FOR UNKNOWN INDICATION
     Dosage: 15 MILLIGRAM, EVERY 3 WK
     Route: 058
  2. ARCOXIA [Concomitant]
     Active Substance: ETORICOXIB
     Indication: PRODUCT USED FOR UNKNOWN INDICATION
  3. VALTREX [Concomitant]
     Active Substance: VALACYCLOVIR HYDROCHLORIDE
     Indication: PRODUCT USED FOR UNKNOWN INDICATION
  4. IMBRUVICA [Suspect]
     Active Substance: IBRUTINIB
     Indication: CHRONIC LYMPHOCYTIC LEUKAEMIA
     Dosage: 420 MILLIGRAM, 1X/DAY:QD
     Route: 048

REACTIONS (16)
  - Lymphocyte count increased [Unknown]
  - Neutrophil count decreased [Not Recovered/Not Resolved]
  - Sepsis [Recovered/Resolved]
  - White blood cell count increased [Unknown]
  - Platelet count decreased [Unknown]
  - Rash [Recovering/Resolving]
  - Infection [Not Recovered/Not Resolved]
  - Depressed mood [Unknown]
  - Skin odour abnormal [Not Recovered/Not Resolved]
  - Fatigue [Recovering/Resolving]
  - Mouth ulceration [Recovering/Resolving]
  - Contusion [Recovering/Resolving]
  - Sleep disorder [Unknown]
  - Dry mouth [Not Recovered/Not Resolved]
  - Urine odour abnormal [Not Recovered/Not Resolved]
  - Laryngitis [Not Recovered/Not Resolved]

NARRATIVE: CASE EVENT DATE: 20190203
